FAERS Safety Report 18022743 (Version 1)
Quarter: 2020Q3

REPORT INFORMATION
  Report Type: Report from Study
  Country: CA (occurrence: CA)
  Receive Date: 20200714
  Receipt Date: 20200714
  Transmission Date: 20201103
  Serious: Yes (Other)
  Sender: FDA-Public Use
  Company Number: CA-BAUSCH-BL-2020-019495

PATIENT
  Age: 77 Year
  Sex: Female

DRUGS (4)
  1. ADCIRCA [Interacting]
     Active Substance: TADALAFIL
     Indication: PULMONARY ARTERIAL HYPERTENSION
     Route: 065
  2. OPSUMIT [Interacting]
     Active Substance: MACITENTAN
     Indication: PRODUCT USED FOR UNKNOWN INDICATION
     Route: 065
  3. VOLIBRIS [Interacting]
     Active Substance: AMBRISENTAN
     Indication: PRODUCT USED FOR UNKNOWN INDICATION
     Route: 065
  4. DILTIAZEM. [Suspect]
     Active Substance: DILTIAZEM
     Indication: PRODUCT USED FOR UNKNOWN INDICATION
     Route: 065

REACTIONS (6)
  - Drug interaction [Not Recovered/Not Resolved]
  - Rash [Not Recovered/Not Resolved]
  - Dyspnoea [Not Recovered/Not Resolved]
  - Nasal congestion [Not Recovered/Not Resolved]
  - Cataract [Not Recovered/Not Resolved]
  - Eye haemorrhage [Not Recovered/Not Resolved]
